FAERS Safety Report 15153235 (Version 2)
Quarter: 2018Q3

REPORT INFORMATION
  Report Type: Spontaneous
  Country: FR (occurrence: FR)
  Receive Date: 20180717
  Receipt Date: 20180828
  Transmission Date: 20181010
  Serious: Yes (Hospitalization)
  Sender: FDA-Public Use
  Company Number: FR-SA-2018SA192982

PATIENT
  Age: 56 Year
  Sex: Female
  Weight: 41 kg

DRUGS (2)
  1. TAXOTERE [Suspect]
     Active Substance: DOCETAXEL
     Indication: PRODUCT USED FOR UNKNOWN INDICATION
     Dosage: UNK
     Route: 042
     Dates: start: 20180608, end: 20180608
  2. DURVALUMAB. [Suspect]
     Active Substance: DURVALUMAB
     Indication: PRODUCT USED FOR UNKNOWN INDICATION
     Dosage: UNK
     Dates: start: 201803

REACTIONS (6)
  - Rash erythematous [Recovered/Resolved]
  - Alopecia [Unknown]
  - Aplasia [Recovered/Resolved]
  - Rash pruritic [Recovered/Resolved]
  - Wrong drug administered [Unknown]
  - Psychological trauma [Unknown]

NARRATIVE: CASE EVENT DATE: 201806
